FAERS Safety Report 12592029 (Version 1)
Quarter: 2016Q3

REPORT INFORMATION
  Report Type: Spontaneous
  Country: US (occurrence: None)
  Receive Date: 20160725
  Receipt Date: 20160725
  Transmission Date: 20161109
  Serious: Yes (Other)
  Sender: FDA-Public Use
  Company Number: None

PATIENT
  Age: 69 Year
  Sex: Female
  Weight: 73.48 kg

DRUGS (10)
  1. VISITOR [Concomitant]
  2. MANASSAS [Concomitant]
  3. METOPROLOL. [Suspect]
     Active Substance: METOPROLOL
     Indication: HYPERTENSION
     Route: 048
     Dates: start: 20160701, end: 20160710
  4. MULTIVITAMINS [Concomitant]
     Active Substance: VITAMINS
  5. SYMBOLOGY [Concomitant]
  6. FIORACET [Concomitant]
     Active Substance: ACETAMINOPHEN\BUTALBITAL\CAFFEINE
  7. CHLORTRIMETON [Concomitant]
     Active Substance: CHLORPHENIRAMINE MALEATE
  8. PHILLIPS MILK OF MAGNESIA [Concomitant]
  9. SINGULAIR [Concomitant]
     Active Substance: MONTELUKAST SODIUM
  10. VITAMIN D [Concomitant]
     Active Substance: CHOLECALCIFEROL

REACTIONS (10)
  - Nausea [None]
  - Blood pressure increased [None]
  - Malaise [None]
  - Fatigue [None]
  - Drug ineffective [None]
  - Headache [None]
  - Dizziness [None]
  - Blood pressure decreased [None]
  - Product substitution issue [None]
  - Feeling abnormal [None]

NARRATIVE: CASE EVENT DATE: 20160706
